FAERS Safety Report 21393332 (Version 1)
Quarter: 2022Q3

REPORT INFORMATION
  Report Type: Spontaneous
  Country: US (occurrence: US)
  Receive Date: 20220929
  Receipt Date: 20220929
  Transmission Date: 20221027
  Serious: No
  Sender: FDA-Public Use
  Company Number: US-009507513-2209USA008797

PATIENT
  Age: 62 Year
  Sex: Female

DRUGS (16)
  1. DIFICID [Suspect]
     Active Substance: FIDAXOMICIN
     Indication: Clostridium difficile infection
     Dosage: UNK
     Route: 048
  2. VANCOMYCIN [Concomitant]
     Active Substance: VANCOMYCIN
     Indication: Clostridium difficile infection
     Dosage: 125 MILLIGRAM, QID, 2-WEEK COURSE
     Route: 048
  3. APIXABAN [Concomitant]
     Active Substance: APIXABAN
  4. PRINIVIL [Concomitant]
     Active Substance: LISINOPRIL
  5. METOPROLOL [Concomitant]
     Active Substance: METOPROLOL
  6. ATORVASTATIN [Concomitant]
     Active Substance: ATORVASTATIN
  7. BUPROPION [Concomitant]
     Active Substance: BUPROPION
  8. LEVOTHYROXINE [Concomitant]
     Active Substance: LEVOTHYROXINE
  9. PANTOPRAZOLE [Concomitant]
     Active Substance: PANTOPRAZOLE
  10. LIDOCAINE [Concomitant]
     Active Substance: LIDOCAINE
     Dosage: FORMULATION PATCH
  11. ACETAMINOPHEN [Concomitant]
     Active Substance: ACETAMINOPHEN
     Dosage: UNK, PRN
  12. ALBUTEROL [Concomitant]
     Active Substance: ALBUTEROL
     Dosage: UNK, PRN
  13. BENZONATATE [Concomitant]
     Active Substance: BENZONATATE
     Dosage: UNK, PRN
  14. BISACODYL [Concomitant]
     Active Substance: BISACODYL
     Dosage: UNK, PRN
  15. MECLIZINE [Concomitant]
     Active Substance: MECLIZINE HYDROCHLORIDE
     Dosage: UNK, PRN
  16. LORAZEPAM [Concomitant]
     Active Substance: LORAZEPAM
     Dosage: UNK, PRNQ

REACTIONS (2)
  - Drug eruption [Recovering/Resolving]
  - Rash morbilliform [Recovering/Resolving]
